FAERS Safety Report 18181410 (Version 1)
Quarter: 2020Q3

REPORT INFORMATION
  Report Type: Spontaneous
  Country: IT (occurrence: IT)
  Receive Date: 20200821
  Receipt Date: 20200821
  Transmission Date: 20201103
  Serious: Yes (Hospitalization, Other)
  Sender: FDA-Public Use
  Company Number: IT-MICRO LABS LIMITED-ML2020-02434

PATIENT
  Age: 69 Year
  Sex: Male
  Weight: 70 kg

DRUGS (4)
  1. RIVAROXABAN [Interacting]
     Active Substance: RIVAROXABAN
     Indication: ATRIAL FIBRILLATION
  2. LEVETIRACETAM. [Suspect]
     Active Substance: LEVETIRACETAM
     Indication: SIMPLE PARTIAL SEIZURES
     Route: 048
  3. LACOSAMIDE. [Concomitant]
     Active Substance: LACOSAMIDE
     Indication: SIMPLE PARTIAL SEIZURES
  4. LEVETIRACETAM. [Suspect]
     Active Substance: LEVETIRACETAM
     Dosage: REDUCED DOSE BY DOSE TAPPERING
     Route: 048

REACTIONS (2)
  - Drug interaction [Unknown]
  - Transient ischaemic attack [Recovered/Resolved]
